FAERS Safety Report 4318117-9 (Version None)
Quarter: 2004Q1

REPORT INFORMATION
  Report Type: 
  Country: None (occurrence: None)
  Receive Date: 20040317
  Receipt Date: 20040115
  Transmission Date: 20041129
  Serious: Yes (Hospitalization)
  Sender: FDA-Public Use
  Company Number: SE-ROCHE-356166

PATIENT
  Age: 27 Year
  Sex: Female
  Weight: 67 kg

DRUGS (12)
  1. DACLIZUMAB [Suspect]
     Route: 042
     Dates: start: 20031130, end: 20031130
  2. DACLIZUMAB [Suspect]
     Route: 042
     Dates: start: 20031215, end: 20040123
  3. MYCOPHENOLATE MOFETIL [Suspect]
     Route: 048
     Dates: start: 20031201, end: 20040305
  4. PREDNISOLONE [Suspect]
     Route: 048
     Dates: start: 20031201
  5. PREDNISOLONE [Suspect]
     Route: 048
     Dates: start: 20031215
  6. SIROLIMUS [Suspect]
     Route: 048
     Dates: start: 20031201
  7. SIROLIMUS [Suspect]
     Route: 048
     Dates: start: 20031218
  8. VALGANCICLOVIR [Concomitant]
     Route: 048
     Dates: start: 20031207
  9. FUROSEMIDE [Concomitant]
     Route: 048
     Dates: start: 20031202
  10. PANTOPRAZOL [Concomitant]
     Route: 048
     Dates: start: 20031222
  11. ASPIRIN [Concomitant]
     Route: 048
     Dates: start: 20031215
  12. FELODIPIN [Concomitant]
     Route: 048
     Dates: start: 20040206

REACTIONS (2)
  - INFECTION [None]
  - RENAL IMPAIRMENT [None]
